FAERS Safety Report 22369155 (Version 1)
Quarter: 2023Q2

REPORT INFORMATION
  Report Type: Spontaneous
  Country: MX (occurrence: None)
  Receive Date: 20230525
  Receipt Date: 20230525
  Transmission Date: 20230722
  Serious: Yes (Death)
  Sender: FDA-Public Use
  Company Number: MX-Merck Healthcare KGaA-9404318

PATIENT
  Age: 65 Year
  Sex: Female

DRUGS (3)
  1. MAVENCLAD [Suspect]
     Active Substance: CLADRIBINE
     Indication: Secondary progressive multiple sclerosis
     Dosage: YEAR ONE THERAPY.
     Dates: start: 202202
  2. MAVENCLAD [Suspect]
     Active Substance: CLADRIBINE
     Dosage: YEAR TWO FIRST CYCLE THERAPY.
     Dates: start: 202303
  3. MAVENCLAD [Suspect]
     Active Substance: CLADRIBINE
     Dosage: YEAR TWO SECOND CYCLE THERAPY.
     Dates: start: 202304

REACTIONS (1)
  - Cerebral haemorrhage [Fatal]
